FAERS Safety Report 5315341-3 (Version None)
Quarter: 2007Q2

REPORT INFORMATION
  Report Type: 
  Country: None (occurrence: None)
  Receive Date: 20070502
  Receipt Date: 20070423
  Transmission Date: 20071010
  Serious: Yes (Other)
  Sender: FDA-Public Use
  Company Number: US-PFIZER INC-2007034282

PATIENT
  Sex: Male

DRUGS (6)
  1. SERTRALINE [Suspect]
     Route: 064
  2. TEMAZEPAM [Suspect]
     Route: 064
  3. DIAZEPAM [Suspect]
     Route: 064
  4. RISPERIDONE [Suspect]
     Route: 064
  5. PIPOTIAZINE [Suspect]
     Route: 064
  6. PROCYCLIDINE HYDROCHLORIDE 2MG TAB [Suspect]
     Route: 064

REACTIONS (2)
  - DRUG EXPOSURE DURING PREGNANCY [None]
  - NEURODEVELOPMENTAL DISORDER [None]
